FAERS Safety Report 17725427 (Version 2)
Quarter: 2020Q2

REPORT INFORMATION
  Report Type: Spontaneous
  Country: DE (occurrence: DE)
  Receive Date: 20200429
  Receipt Date: 20200529
  Transmission Date: 20200714
  Serious: Yes (Other)
  Sender: FDA-Public Use
  Company Number: DE-009507513-1908DEU004161

PATIENT
  Age: 36 Year
  Sex: Female

DRUGS (1)
  1. ZEPATIER [Suspect]
     Active Substance: ELBASVIR\GRAZOPREVIR
     Dosage: UNK
     Route: 048
     Dates: start: 201906

REACTIONS (3)
  - Stillbirth [Unknown]
  - Maternal exposure during pregnancy [Recovered/Resolved]
  - Drug dependence [Unknown]
